FAERS Safety Report 18938044 (Version 2)
Quarter: 2022Q3

REPORT INFORMATION
  Report Type: Spontaneous
  Country: CN (occurrence: CN)
  Receive Date: 20210225
  Receipt Date: 20220819
  Transmission Date: 20221027
  Serious: Yes (Life-Threatening, Hospitalization, Other)
  Sender: FDA-Public Use
  Company Number: CN-ACCORD-218118

PATIENT
  Age: 54 Year
  Sex: Female

DRUGS (10)
  1. ANASTROZOLE [Suspect]
     Active Substance: ANASTROZOLE
     Indication: Breast cancer
  2. CISPLATIN [Suspect]
     Active Substance: CISPLATIN
     Indication: Breast cancer
     Dosage: INTRAPERICARDIAL USE
  3. PACLITAXEL [Suspect]
     Active Substance: PACLITAXEL
     Indication: Breast cancer
  4. ALBUMIN HUMAN [Suspect]
     Active Substance: ALBUMIN HUMAN
     Indication: Breast cancer
  5. XELODA [Suspect]
     Active Substance: CAPECITABINE
     Indication: Breast cancer
  6. ENANTONE LP [Suspect]
     Active Substance: LEUPROLIDE ACETATE
     Indication: Breast cancer
  7. VINORELBINE [Suspect]
     Active Substance: VINORELBINE TARTRATE
     Indication: Breast cancer
  8. EXEMESTANE [Suspect]
     Active Substance: EXEMESTANE
     Indication: Breast cancer
  9. EVEROLIMUS [Suspect]
     Active Substance: EVEROLIMUS
     Indication: Breast cancer
  10. CISPLATIN [Suspect]
     Active Substance: CISPLATIN
     Indication: Breast cancer
     Dosage: SYSTEMIC CHEMOTHERAPY

REACTIONS (4)
  - Chest discomfort [Unknown]
  - Dyspnoea [Unknown]
  - Atrial rupture [Unknown]
  - Cardiac pseudoaneurysm [Unknown]
